FAERS Safety Report 4772060-X (Version None)
Quarter: 2005Q3

REPORT INFORMATION
  Report Type: 
  Country: None (occurrence: None)
  Receive Date: 20050918
  Receipt Date: 20050419
  Transmission Date: 20060218
  Serious: Yes (Hospitalization, Disabling)
  Sender: FDA-Public Use
  Company Number: US-MERCK-0504USA03735

PATIENT
  Age: 42 Year
  Sex: Female
  Weight: 66 kg

DRUGS (7)
  1. CARTIA (DILTIAZEM HYDROCHLORIDE) [Concomitant]
     Indication: INFLAMMATION
     Route: 048
     Dates: start: 20000101, end: 20040101
  2. SYNTHROID [Concomitant]
     Route: 065
     Dates: start: 19840101
  3. VIOXX [Suspect]
     Indication: INFLAMMATION
     Route: 048
     Dates: start: 20031001, end: 20040201
  4. POTASSIUM CHLORIDE [Concomitant]
     Route: 065
     Dates: start: 20000101, end: 20040101
  5. VIVELLE-DOT [Concomitant]
     Route: 065
     Dates: start: 20021228
  6. WELLBUTRIN [Concomitant]
     Route: 065
     Dates: start: 20000101
  7. ZOLOFT [Concomitant]
     Route: 065
     Dates: start: 20000101

REACTIONS (7)
  - CEREBROVASCULAR ACCIDENT [None]
  - DEPRESSION [None]
  - HEADACHE [None]
  - HYPOAESTHESIA [None]
  - INJURY [None]
  - PAIN IN EXTREMITY [None]
  - POST-TRAUMATIC STRESS DISORDER [None]
